FAERS Safety Report 4901169-2 (Version None)
Quarter: 2006Q1

REPORT INFORMATION
  Report Type: 
  Country: None (occurrence: None)
  Receive Date: 20060201
  Receipt Date: 20060125
  Transmission Date: 20060701
  Serious: Yes (Hospitalization, Disabling)
  Sender: FDA-Public Use
  Company Number: GBWYE335626JAN06

PATIENT
  Age: 28 Year
  Sex: Female

DRUGS (1)
  1. EFFEXOR [Suspect]
     Dosage: VARIABLE ORAL
     Route: 048
     Dates: end: 20051230

REACTIONS (2)
  - BENIGN INTRACRANIAL HYPERTENSION [None]
  - DRUG WITHDRAWAL SYNDROME [None]
